FAERS Safety Report 23896172 (Version 2)
Quarter: 2025Q1

REPORT INFORMATION
  Report Type: Spontaneous
  Country: FR (occurrence: FR)
  Receive Date: 20240524
  Receipt Date: 20250114
  Transmission Date: 20250408
  Serious: Yes (Other)
  Sender: PFIZER
  Company Number: FR-PFIZER INC-PV202400067678

PATIENT
  Age: 4 Year
  Sex: Female

DRUGS (2)
  1. NGENLA [Suspect]
     Active Substance: SOMATROGON-GHLA
     Route: 058
     Dates: start: 20240402
  2. NGENLA [Suspect]
     Active Substance: SOMATROGON-GHLA
     Dates: start: 20241115

REACTIONS (1)
  - Pineal gland cyst [Recovered/Resolved]
